FAERS Safety Report 7513382-9 (Version None)
Quarter: 2011Q2

REPORT INFORMATION
  Report Type: 
  Country: None (occurrence: None)
  Receive Date: 20110525
  Receipt Date: 20110525
  Transmission Date: 20111010
  Serious: Yes (Other)
  Sender: FDA-Public Use
  Company Number: None

PATIENT
  Sex: Male
  Weight: 81.6475 kg

DRUGS (1)
  1. COREG [Suspect]
     Indication: ATRIAL FIBRILLATION
     Dosage: TWICE DAILY DAILY MOUTH
     Route: 048
     Dates: start: 20080110

REACTIONS (5)
  - ABDOMINAL DISCOMFORT [None]
  - FLATULENCE [None]
  - HEADACHE [None]
  - CONSTIPATION [None]
  - ABDOMINAL DISTENSION [None]
